FAERS Safety Report 6416706-9 (Version None)
Quarter: 2009Q4

REPORT INFORMATION
  Report Type: 
  Country: None (occurrence: None)
  Receive Date: 20091027
  Receipt Date: 20091015
  Transmission Date: 20100525
  Serious: Yes (Hospitalization)
  Sender: FDA-Public Use
  Company Number: GB-ELI_LILLY_AND_COMPANY-GB200910004218

PATIENT
  Age: 13 Year
  Sex: Male

DRUGS (3)
  1. STRATTERA [Suspect]
     Dosage: 1.2 MG/KG, UNK
     Dates: start: 20081201, end: 20090101
  2. STRATTERA [Suspect]
     Dosage: 60 MG, DAILY (1/D)
     Dates: start: 20090701, end: 20090101
  3. CONCERTA [Concomitant]
     Dosage: 54 MG, UNK

REACTIONS (1)
  - SUICIDE ATTEMPT [None]
